FAERS Safety Report 7823968-X (Version None)
Quarter: 2011Q4

REPORT INFORMATION
  Report Type: 
  Country: None (occurrence: None)
  Receive Date: 20111019
  Receipt Date: 20111010
  Transmission Date: 20120403
  Serious: Yes (Hospitalization)
  Sender: FDA-Public Use
  Company Number: CH-JNJFOC-20110808297

PATIENT
  Sex: Male
  Weight: 72 kg

DRUGS (10)
  1. GOSERELIN [Concomitant]
     Indication: PROSTATE CANCER
     Route: 058
     Dates: start: 20110906, end: 20110906
  2. GLUCOCORTICOID [Concomitant]
     Route: 048
     Dates: start: 20110101
  3. NEXIUM [Concomitant]
     Route: 048
     Dates: start: 20110107
  4. BUPRENORPHINE [Concomitant]
     Route: 062
     Dates: start: 20110415
  5. PREDNISONE [Suspect]
     Indication: PROSTATE CANCER METASTATIC
     Route: 048
     Dates: start: 20110415
  6. MARCUMAR [Concomitant]
     Indication: PULMONARY EMBOLISM
     Route: 048
     Dates: start: 20110416
  7. ABIRATERONE ACETATE [Suspect]
     Route: 048
  8. BUPRENORPHINE [Concomitant]
     Indication: TUMOUR PAIN
     Route: 062
     Dates: start: 20110818
  9. ABIRATERONE ACETATE [Suspect]
     Indication: PROSTATE CANCER METASTATIC
     Route: 048
     Dates: start: 20110415, end: 20110816
  10. INSPRA [Concomitant]
     Route: 048
     Dates: start: 20110421

REACTIONS (7)
  - DECREASED APPETITE [None]
  - FATIGUE [None]
  - ARTHRALGIA [None]
  - CHEST PAIN [None]
  - TUMOUR PAIN [None]
  - BACK PAIN [None]
  - GROIN PAIN [None]
